FAERS Safety Report 22802797 (Version 2)
Quarter: 2024Q1

REPORT INFORMATION
  Report Type: Report from Study
  Country: TH (occurrence: TH)
  Receive Date: 20230809
  Receipt Date: 20240125
  Transmission Date: 20240410
  Serious: Yes (Death, Other)
  Sender: FDA-Public Use
  Company Number: TH-002147023-NVSC2021TH131253

PATIENT
  Age: 53 Year
  Sex: Female

DRUGS (4)
  1. KISQALI [Suspect]
     Active Substance: RIBOCICLIB
     Indication: Breast cancer metastatic
     Dosage: 3 DF, QD (TABS)
     Route: 048
     Dates: start: 202105
  2. KISQALI [Suspect]
     Active Substance: RIBOCICLIB
     Dosage: 200 MG
     Route: 048
  3. GOSERELIN [Concomitant]
     Active Substance: GOSERELIN
     Indication: Product used for unknown indication
     Dosage: 3.6 MG QUANTITY 1
     Route: 065
     Dates: start: 20200422
  4. RESTASIS [Concomitant]
     Active Substance: CYCLOSPORINE
     Indication: Product used for unknown indication
     Dosage: UNK (STRENGTH: 30X0.4ML) QUANTITY 1
     Route: 065
     Dates: start: 20210127

REACTIONS (4)
  - Death [Fatal]
  - Metastases to liver [Unknown]
  - Metastases to bone [Unknown]
  - Underdose [Unknown]

NARRATIVE: CASE EVENT DATE: 20230919
